FAERS Safety Report 7073436-0 (Version None)
Quarter: 2010Q4

REPORT INFORMATION
  Report Type: 
  Country: None (occurrence: None)
  Receive Date: 20101029
  Receipt Date: 20100617
  Transmission Date: 20110411
  Serious: No
  Sender: FDA-Public Use
  Company Number: A0865743A

PATIENT
  Age: 81 Year
  Sex: Male

DRUGS (7)
  1. ADVAIR DISKUS 100/50 [Suspect]
     Indication: CHRONIC OBSTRUCTIVE PULMONARY DISEASE
     Dosage: 1BLS TWICE PER DAY
     Route: 055
     Dates: start: 20100610
  2. METOPROLOL [Concomitant]
  3. FLOMAX [Concomitant]
  4. DIGOXIN [Concomitant]
  5. PLAVIX [Concomitant]
  6. THYROID MEDICATION [Concomitant]
  7. DIOVAN [Concomitant]

REACTIONS (1)
  - DYSPNOEA [None]
